FAERS Safety Report 5381987-X (Version None)
Quarter: 2007Q3

REPORT INFORMATION
  Report Type: 
  Country: None (occurrence: None)
  Receive Date: 20070709
  Receipt Date: 20070705
  Transmission Date: 20080115
  Serious: Yes (Other)
  Sender: FDA-Public Use
  Company Number: B0474165A

PATIENT
  Age: 59 Year
  Sex: Male

DRUGS (6)
  1. PAXIL [Suspect]
     Indication: DEPRESSION
     Dosage: 20MG PER DAY
     Route: 048
     Dates: start: 20070528
  2. TRIAZOLAM [Suspect]
     Dosage: 40TAB PER DAY
     Dates: start: 20070601
  3. HALCION [Concomitant]
     Dosage: .25MG PER DAY
     Route: 048
  4. HALCION [Concomitant]
     Route: 048
     Dates: start: 20070601, end: 20070601
  5. INSULIN [Concomitant]
     Route: 058
  6. NEO-MINOPHAGEN-C [Concomitant]
     Route: 042

REACTIONS (5)
  - ANXIETY [None]
  - INTENTIONAL OVERDOSE [None]
  - IRRITABILITY [None]
  - SUICIDAL IDEATION [None]
  - SUICIDE ATTEMPT [None]
